FAERS Safety Report 7130641-2 (Version None)
Quarter: 2010Q4

REPORT INFORMATION
  Report Type: 
  Country: None (occurrence: None)
  Receive Date: 20101029
  Receipt Date: 20100625
  Transmission Date: 20110411
  Serious: No
  Sender: FDA-Public Use
  Company Number: US-002345

PATIENT
  Sex: Male

DRUGS (8)
  1. FIRMAGON [Suspect]
     Indication: PRODUCT USED FOR UNKNOWN INDICATION
     Dosage: (80 MG 1X/MONTH SUBCUTANEOUS), (240 MG  1X/MONTH SUBCUTANEOUS
     Route: 058
     Dates: start: 20100430, end: 20100430
  2. FIRMAGON [Suspect]
     Indication: PRODUCT USED FOR UNKNOWN INDICATION
     Dosage: (80 MG 1X/MONTH SUBCUTANEOUS), (240 MG  1X/MONTH SUBCUTANEOUS
     Route: 058
     Dates: start: 20100527, end: 20100624
  3. FOLIC ACID [Concomitant]
  4. OMEPRAZOLE [Concomitant]
  5. LISINOPRIL [Concomitant]
  6. ASPIRIN [Concomitant]
  7. SULTOPRIDE [Concomitant]
  8. LOVASTATIN [Concomitant]

REACTIONS (1)
  - PAIN [None]
